FAERS Safety Report 6078693-5 (Version None)
Quarter: 2009Q1

REPORT INFORMATION
  Report Type: 
  Country: None (occurrence: None)
  Receive Date: 20090216
  Receipt Date: 20090209
  Transmission Date: 20090719
  Serious: Yes (Death, Hospitalization, Other)
  Sender: FDA-Public Use
  Company Number: US-BAYER-200838307NA

PATIENT
  Age: 60 Year
  Sex: Female
  Weight: 66 kg

DRUGS (2)
  1. SORAFENIB [Suspect]
     Indication: GLIOMA
     Dosage: TOTAL DAILY DOSE: 400 MG  UNIT DOSE: 200 MG
     Route: 048
     Dates: start: 20080901, end: 20080925
  2. TEMOZOLOMIDE [Suspect]
     Indication: GLIOMA
     Dosage: TOTAL DAILY DOSE: 150 MG  UNIT DOSE: 75 MG/M2
     Dates: start: 20080901, end: 20081002

REACTIONS (5)
  - APLASTIC ANAEMIA [None]
  - BRONCHOPULMONARY ASPERGILLOSIS [None]
  - LEUKOPENIA [None]
  - PLATELET COUNT DECREASED [None]
  - PYREXIA [None]
